FAERS Safety Report 5924819-0 (Version None)
Quarter: 2008Q4

REPORT INFORMATION
  Report Type: 
  Country: None (occurrence: None)
  Receive Date: 20081017
  Receipt Date: 20081017
  Transmission Date: 20090506
  Serious: Yes (Hospitalization)
  Sender: FDA-Public Use
  Company Number: None

PATIENT
  Age: 66 Year
  Sex: Female
  Weight: 76.4 kg

DRUGS (18)
  1. DOCETAXEL [Suspect]
     Dosage: 75MG /M2
  2. RAD001 [Suspect]
     Dosage: 5 MG
     Dates: start: 20081007
  3. BENICAR [Concomitant]
  4. PREVACID [Concomitant]
  5. LAMICTAL [Concomitant]
  6. DOXALASIN MESYLATE [Concomitant]
  7. BISOPROLOL FUMARATE AND HYDROCHLOROTHIAZIDE [Concomitant]
  8. PLAVIX [Concomitant]
  9. GLIMPEPRIRIDE [Concomitant]
  10. ZOLPIDEM TARTRATE [Concomitant]
  11. LOMOTIL [Concomitant]
  12. NAPROXEN [Concomitant]
  13. ATROPINE DEFLOCCULATE [Concomitant]
  14. LISINOPRIL AND HYDROCHLOROTHIAZIDE [Concomitant]
  15. CLOMIPRAMINE HCL [Concomitant]
  16. DECADRON [Concomitant]
  17. DOXAZOSIN MESYLATE [Concomitant]
  18. LAMICTAL [Concomitant]

REACTIONS (1)
  - FEBRILE NEUTROPENIA [None]
